FAERS Safety Report 6804354-8 (Version None)
Quarter: 2010Q2

REPORT INFORMATION
  Report Type: 
  Country: None (occurrence: None)
  Receive Date: 20100628
  Receipt Date: 20070320
  Transmission Date: 20101027
  Serious: No
  Sender: FDA-Public Use
  Company Number: US-PFIZER INC-2007011707

PATIENT
  Sex: Male
  Weight: 88.45 kg

DRUGS (2)
  1. XALATAN [Suspect]
     Indication: GLAUCOMA
     Route: 047
     Dates: start: 20050101
  2. TIMOLOL MALEATE [Concomitant]

REACTIONS (1)
  - HEART RATE IRREGULAR [None]
